FAERS Safety Report 7711921-6 (Version None)
Quarter: 2011Q3

REPORT INFORMATION
  Report Type: 
  Country: None (occurrence: None)
  Receive Date: 20110822
  Receipt Date: 20110811
  Transmission Date: 20111222
  Serious: Yes (Other)
  Sender: FDA-Public Use
  Company Number: CIP06001387

PATIENT
  Age: 70 Year
  Sex: Male

DRUGS (6)
  1. URSO 250 [Concomitant]
  2. ACTONEL [Suspect]
     Indication: OSTEOPOROSIS
     Dosage: 35 MG ONCE WEEKLY, ORAL
     Route: 048
     Dates: start: 20070101, end: 20090101
  3. ACTONEL [Suspect]
     Indication: OSTEOPOROSIS
     Dosage: 35 MG ONCE WEEKLY, ORAL
     Route: 048
     Dates: start: 20031101, end: 20040302
  4. ACTONEL [Suspect]
     Indication: OSTEOPOROSIS
     Dosage: 35 MG ONCE WEEKLY, ORAL
     Route: 048
     Dates: start: 20040101, end: 20071101
  5. TUMS /00193601/(CALCIUM CARBONATE, MAGNESIUM CARBONATE, MAGNESIUM TRIS [Concomitant]
  6. ROCALTROL [Concomitant]

REACTIONS (18)
  - PERIODONTITIS [None]
  - FLANK PAIN [None]
  - TOOTH EXTRACTION [None]
  - DYSPNOEA [None]
  - DYSSTASIA [None]
  - GAIT DISTURBANCE [None]
  - GINGIVAL RECESSION [None]
  - PRODUCT MEASURED POTENCY ISSUE [None]
  - ARTHRALGIA [None]
  - MUSCULOSKELETAL PAIN [None]
  - PRODUCT QUALITY ISSUE [None]
  - OSTEOMYELITIS [None]
  - IMPAIRED HEALING [None]
  - IMPLANT SITE INFECTION [None]
  - MUSCLE SPASMS [None]
  - DEVICE FAILURE [None]
  - MUSCULOSKELETAL CHEST PAIN [None]
  - ANKLE FRACTURE [None]
